FAERS Safety Report 13741770 (Version 1)
Quarter: 2017Q3

REPORT INFORMATION
  Report Type: Spontaneous
  Country: GB (occurrence: GB)
  Receive Date: 20170711
  Receipt Date: 20170711
  Transmission Date: 20171127
  Serious: Yes (Other)
  Sender: FDA-Public Use
  Company Number: GB-PFIZER INC-2017295135

PATIENT
  Age: 60 Year
  Sex: Female
  Weight: 74 kg

DRUGS (4)
  1. TOLTERODINE TARTRATE. [Suspect]
     Active Substance: TOLTERODINE TARTRATE
     Dosage: UNK
     Dates: start: 20170627, end: 2017
  2. VISCOTEARS [Concomitant]
     Active Substance: CARBOMER
     Dosage: 1 DF, 3X/DAY (TO THE AFFECTED EYE)
     Dates: start: 20150806
  3. BENDROFLUMETHIAZIDE [Concomitant]
     Active Substance: BENDROFLUMETHIAZIDE
     Dosage: 1 DF, 1X/DAY (EACH MORNING)
     Dates: start: 20160711
  4. DARIFENACIN. [Concomitant]
     Active Substance: DARIFENACIN
     Dosage: 1 DF, 1X/DAY
     Dates: start: 20170531

REACTIONS (1)
  - Nocturnal dyspnoea [Recovered/Resolved]

NARRATIVE: CASE EVENT DATE: 20170627
